FAERS Safety Report 8472153-X (Version None)
Quarter: 2012Q2

REPORT INFORMATION
  Report Type: 
  Country: None (occurrence: None)
  Receive Date: 20120627
  Receipt Date: 20120622
  Transmission Date: 20120825
  Serious: Yes (Life-Threatening, Hospitalization)
  Sender: FDA-Public Use
  Company Number: DE-MERCK-1205DEU00036

PATIENT
  Age: 77 Year
  Sex: Male
  Weight: 90 kg

DRUGS (2)
  1. KETOCONAZOLE [Suspect]
     Indication: PROSTATE CANCER METASTATIC
     Route: 048
     Dates: start: 20111101
  2. ZOCOR [Suspect]
     Indication: CORONARY ARTERY DISEASE
     Route: 048
     Dates: end: 20111101

REACTIONS (6)
  - RHABDOMYOLYSIS [None]
  - ORAL CANDIDIASIS [None]
  - DRUG INTERACTION [None]
  - CHOLELITHIASIS [None]
  - RENAL FAILURE ACUTE [None]
  - HYPOTHYROIDISM [None]
